FAERS Safety Report 23522759 (Version 1)
Quarter: 2024Q1

REPORT INFORMATION
  Report Type: Spontaneous
  Country: US (occurrence: None)
  Receive Date: 20240213
  Receipt Date: 20240213
  Transmission Date: 20240409
  Serious: Yes (Other)
  Sender: FDA-Public Use
  Company Number: None

PATIENT
  Age: 58 Year
  Sex: Female
  Weight: 87.75 kg

DRUGS (12)
  1. CEQUA [Suspect]
     Active Substance: CYCLOSPORINE
     Indication: Ocular rosacea
     Dates: start: 20240123, end: 20240126
  2. Asteline [Concomitant]
  3. FLONASE [Concomitant]
     Active Substance: FLUTICASONE PROPIONATE
  4. CLARITIN [Concomitant]
     Active Substance: LORATADINE
  5. vitamins ABCD [Concomitant]
  6. MAGNESIUM [Concomitant]
     Active Substance: MAGNESIUM
  7. HERBALS\WITHANIA SOMNIFERA ROOT [Concomitant]
     Active Substance: HERBALS\WITHANIA SOMNIFERA ROOT
  8. ALFALFA [Concomitant]
     Active Substance: ALFALFA
  9. ASPIRIN [Concomitant]
     Active Substance: ASPIRIN
  10. PROBIOTICS NOS [Concomitant]
     Active Substance: PROBIOTICS NOS
  11. FISH OIL [Concomitant]
     Active Substance: FISH OIL
  12. HERBALS\TURMERIC [Concomitant]
     Active Substance: HERBALS\TURMERIC

REACTIONS (4)
  - Eye pain [None]
  - Photophobia [None]
  - Swelling of eyelid [None]
  - Ocular hyperaemia [None]

NARRATIVE: CASE EVENT DATE: 20240126
